FAERS Safety Report 18189194 (Version 1)
Quarter: 2020Q3

REPORT INFORMATION
  Report Type: Report from Study
  Country: GT (occurrence: GT)
  Receive Date: 20200824
  Receipt Date: 20200824
  Transmission Date: 20201103
  Serious: Yes (Other)
  Sender: FDA-Public Use
  Company Number: NVSC2020GT231040

PATIENT
  Age: 54 Year
  Sex: Female

DRUGS (2)
  1. VYMADA [Suspect]
     Active Substance: SACUBITRIL\VALSARTAN
     Indication: PRODUCT USED FOR UNKNOWN INDICATION
     Dosage: 0.5 DF (100MG), BID (HALF IN THE MORNING (50MG) AND HALF IN THE AFTERNOON (50MG)
     Route: 065
     Dates: start: 20200308
  2. VYMADA [Suspect]
     Active Substance: SACUBITRIL\VALSARTAN
     Dosage: 100 MG, BID (EVERY 12 HOURS)
     Route: 065

REACTIONS (2)
  - Visual impairment [Unknown]
  - Wrong technique in product usage process [Unknown]
